FAERS Safety Report 8980288 (Version 2)
Quarter: 2013Q1

REPORT INFORMATION
  Report Type: Spontaneous
  Country: CN (occurrence: CN)
  Receive Date: 20121221
  Receipt Date: 20130219
  Transmission Date: 20140127
  Serious: Yes (Other)
  Sender: FDA-Public Use
  Company Number: CN-009507513-1212CHN008061

PATIENT
  Age: 10 Year
  Sex: Male
  Weight: 40 kg

DRUGS (3)
  1. CLARITYNE [Suspect]
     Indication: VIRAL RASH
     Dosage: 10 MG, QD
     Route: 048
     Dates: start: 20090527, end: 20090531
  2. AZITHROMYCIN [Concomitant]
  3. PU DI LAN XIAO YAN PIAN [Concomitant]
     Indication: VIRAL SKIN INFECTION

REACTIONS (2)
  - Grand mal convulsion [Recovering/Resolving]
  - Grand mal convulsion [Recovering/Resolving]
